FAERS Safety Report 7247137-X (Version None)
Quarter: 2011Q1

REPORT INFORMATION
  Report Type: 
  Country: None (occurrence: None)
  Receive Date: 20110127
  Receipt Date: 20100901
  Transmission Date: 20110831
  Serious: No
  Sender: FDA-Public Use
  Company Number: US-BAUSCH-2010BL004941

PATIENT
  Age: 79 Year
  Sex: Male

DRUGS (1)
  1. ALAWAY [Suspect]
     Indication: SEASONAL ALLERGY
     Route: 047
     Dates: start: 20100810, end: 20100813

REACTIONS (4)
  - EYELID OEDEMA [None]
  - OCULAR HYPERAEMIA [None]
  - EYE PRURITUS [None]
  - EYE IRRITATION [None]
